FAERS Safety Report 8614803-0 (Version None)
Quarter: 2012Q3

REPORT INFORMATION
  Report Type: 
  Country: None (occurrence: None)
  Receive Date: 20120823
  Receipt Date: 20120814
  Transmission Date: 20120928
  Serious: Yes (Hospitalization)
  Sender: FDA-Public Use
  Company Number: FR-009507513-1208FRA006780

PATIENT

DRUGS (5)
  1. VIMPAT [Suspect]
     Indication: NEUROPATHY PERIPHERAL
     Dosage: 100 MG, BID
     Dates: start: 20120618
  2. VITAMIN D [Suspect]
     Indication: HYPOVITAMINOSIS
     Dosage: 2 DF, QD
     Dates: start: 20090921
  3. ISENTRESS [Suspect]
     Indication: HIV INFECTION
     Dosage: 400 MG, BID
     Route: 048
     Dates: start: 20120223
  4. OLMESARTAN MEDOXOMIL AND HYDROCHLOROTHIZIDE [Suspect]
     Indication: HYPERTENSION
     Dosage: 20 MG, QD
     Dates: start: 20080623, end: 20120723
  5. MARAVIROC [Suspect]
     Indication: HIV INFECTION
     Dosage: 300 MG, BID
     Dates: start: 20120223

REACTIONS (3)
  - MALAISE [None]
  - VISION BLURRED [None]
  - RENAL FAILURE [None]
